FAERS Safety Report 7926677-1 (Version None)
Quarter: 2011Q4

REPORT INFORMATION
  Report Type: 
  Country: None (occurrence: None)
  Receive Date: 20111118
  Receipt Date: 20111116
  Transmission Date: 20120403
  Serious: No
  Sender: FDA-Public Use
  Company Number: US-PFIZER INC-2011281177

PATIENT
  Sex: Male

DRUGS (2)
  1. ZOLOFT [Suspect]
     Dosage: 250 MG, UNK
  2. ZOLOFT [Suspect]
     Dosage: 200 MG, UNK

REACTIONS (3)
  - INCORRECT DOSE ADMINISTERED [None]
  - FATIGUE [None]
  - SOMNOLENCE [None]
